FAERS Safety Report 7167622-9 (Version None)
Quarter: 2010Q4

REPORT INFORMATION
  Report Type: 
  Country: None (occurrence: None)
  Receive Date: 20101216
  Receipt Date: 20100601
  Transmission Date: 20110411
  Serious: No
  Sender: FDA-Public Use
  Company Number: A0862193A

PATIENT
  Age: 25 Year
  Sex: Male

DRUGS (1)
  1. NICORETTE (MINT) [Suspect]
     Dates: start: 20100601, end: 20100601

REACTIONS (7)
  - DYSPEPSIA [None]
  - DYSPHAGIA [None]
  - FOAMING AT MOUTH [None]
  - LACRIMATION INCREASED [None]
  - MALAISE [None]
  - OROPHARYNGEAL PAIN [None]
  - PHARYNGEAL OEDEMA [None]
